FAERS Safety Report 9200834 (Version 1)
Quarter: 2013Q1

REPORT INFORMATION
  Report Type: Spontaneous
  Country: US (occurrence: None)
  Receive Date: 20130328
  Receipt Date: 20130328
  Transmission Date: 20140127
  Serious: Yes (Hospitalization)
  Sender: FDA-Public Use
  Company Number: None

PATIENT
  Age: 38 Month
  Sex: Male
  Weight: 102 kg

DRUGS (2)
  1. WARFARIN [Suspect]
     Indication: DEEP VEIN THROMBOSIS
     Route: 048
  2. WARFARIN [Suspect]
     Indication: PULMONARY EMBOLISM
     Route: 048

REACTIONS (6)
  - Gastrointestinal haemorrhage [None]
  - Abdominal pain [None]
  - International normalised ratio increased [None]
  - Oesophagogastroduodenoscopy abnormal [None]
  - Polyp [None]
  - Binge drinking [None]
